FAERS Safety Report 8057421-8 (Version None)
Quarter: 2012Q1

REPORT INFORMATION
  Report Type: 
  Country: None (occurrence: None)
  Receive Date: 20120119
  Receipt Date: 20120118
  Transmission Date: 20120608
  Serious: Yes (Other)
  Sender: FDA-Public Use
  Company Number: RU-ROCHE-1031282

PATIENT
  Age: 20 Year
  Sex: Female

DRUGS (1)
  1. ACTEMRA [Suspect]
     Indication: JUVENILE ARTHRITIS
     Route: 041
     Dates: start: 20111201

REACTIONS (5)
  - HEADACHE [None]
  - HYPERTENSION [None]
  - DRUG INEFFECTIVE [None]
  - TACHYCARDIA [None]
  - RED BLOOD CELL SEDIMENTATION RATE INCREASED [None]
